FAERS Safety Report 16359532 (Version 18)
Quarter: 2022Q2

REPORT INFORMATION
  Report Type: Report from Study
  Country: NL (occurrence: NL)
  Receive Date: 20190528
  Receipt Date: 20220424
  Transmission Date: 20220721
  Serious: Yes (Hospitalization)
  Sender: FDA-Public Use
  Company Number: NL-ABBVIE-19S-114-2796205-00

PATIENT
  Sex: Male

DRUGS (12)
  1. CARBIDOPA\LEVODOPA [Suspect]
     Active Substance: CARBIDOPA\LEVODOPA
     Indication: Parkinson^s disease
     Route: 050
     Dates: start: 20170201
  2. CARBIDOPA\LEVODOPA [Suspect]
     Active Substance: CARBIDOPA\LEVODOPA
     Dosage: MD 3.5 CD 4.8 ED 3.5 ND 3.2 ED 3.2,  MD 3.5 CD 4.9 ED: 3.5 CND 3.2, END 3.2 24 HR ADM
     Route: 050
  3. CARBIDOPA\LEVODOPA [Suspect]
     Active Substance: CARBIDOPA\LEVODOPA
     Dosage: MD: 3.6, CD: 5.1, ED: 3.5, CND: 3.5, 24 HOUR ADMINISTRATION
     Route: 050
  4. CARBIDOPA\LEVODOPA [Suspect]
     Active Substance: CARBIDOPA\LEVODOPA
     Dosage: CD 5.5 CDN 3.5 ED 3.5 MD 3.6
     Route: 050
  5. CARBIDOPA\LEVODOPA [Suspect]
     Active Substance: CARBIDOPA\LEVODOPA
     Dosage: MD 3.6 ML; CD 5.5 ML/H; ED 3.5 ML; CND 3.5 ML/H; END 3.2 ML?REMAINS AT 24 HOURS
     Route: 050
  6. CARBIDOPA\LEVODOPA [Suspect]
     Active Substance: CARBIDOPA\LEVODOPA
     Dosage: MD: 3.6ML; CD: 5.5ML/H; ED: 3.5ML; CND: 3.5ML/H; END: 3.2ML
     Route: 050
  7. CARBIDOPA\LEVODOPA [Suspect]
     Active Substance: CARBIDOPA\LEVODOPA
     Dosage: MD: 3.5 ML, CD: 5.9 ML/H, ED: 3.6 ML
     Route: 050
  8. MOVICOLON [Concomitant]
     Active Substance: POLYETHYLENE GLYCOL 3350\POTASSIUM CHLORIDE\SODIUM BICARBONATE\SODIUM CHLORIDE
     Indication: Constipation
     Dosage: 1 SACHET
  9. SYMMETREL [Concomitant]
     Active Substance: AMANTADINE HYDROCHLORIDE
     Indication: Parkinson^s disease
  10. POLYETHYLENE GLYCOLS [Concomitant]
     Active Substance: POLYETHYLENE GLYCOLS
     Indication: Abnormal faeces
     Dosage: THREE SACHETS
  11. POLYETHYLENE GLYCOLS [Concomitant]
     Active Substance: POLYETHYLENE GLYCOLS
     Dosage: 2 SACHETS
  12. BENSERAZIDE HYDROCHLORIDE\LEVODOPA [Concomitant]
     Active Substance: BENSERAZIDE HYDROCHLORIDE\LEVODOPA
     Indication: Parkinson^s disease

REACTIONS (41)
  - Musculoskeletal stiffness [Recovered/Resolved]
  - Hernia [Recovered/Resolved]
  - Transurethral prostatectomy [Recovered/Resolved]
  - Aphonia [Recovered/Resolved]
  - Tremor [Recovered/Resolved]
  - Gait disturbance [Recovered/Resolved]
  - Fatigue [Recovered/Resolved]
  - Freezing phenomenon [Recovered/Resolved]
  - Back pain [Unknown]
  - Tension [Unknown]
  - Mobility decreased [Not Recovered/Not Resolved]
  - Reduced facial expression [Recovered/Resolved]
  - Poor quality sleep [Not Recovered/Not Resolved]
  - Feeding disorder [Recovered/Resolved]
  - Back disorder [Not Recovered/Not Resolved]
  - Restless legs syndrome [Not Recovered/Not Resolved]
  - Device breakage [Unknown]
  - Speech disorder [Not Recovered/Not Resolved]
  - Weight fluctuation [Not Recovered/Not Resolved]
  - Weight decreased [Recovered/Resolved]
  - Hyperhidrosis [Recovering/Resolving]
  - Weight decreased [Recovered/Resolved]
  - Gait disturbance [Unknown]
  - Tremor [Not Recovered/Not Resolved]
  - Fall [Recovered/Resolved]
  - Abnormal dreams [Recovered/Resolved]
  - Medical device site inflammation [Unknown]
  - Bradykinesia [Not Recovered/Not Resolved]
  - Hyperkinesia [Not Recovered/Not Resolved]
  - Stoma site reaction [Recovered/Resolved]
  - Dyskinesia [Recovered/Resolved]
  - Stoma site inflammation [Recovered/Resolved]
  - On and off phenomenon [Not Recovered/Not Resolved]
  - Medical device site dryness [Unknown]
  - Medical device site discolouration [Unknown]
  - Terminal insomnia [Not Recovered/Not Resolved]
  - Stoma site discharge [Unknown]
  - Unevaluable event [Unknown]
  - Influenza [Recovered/Resolved]
  - Device occlusion [Recovered/Resolved]
  - Device difficult to use [Unknown]

NARRATIVE: CASE EVENT DATE: 20190101
